FAERS Safety Report 17038100 (Version 2)
Quarter: 2020Q1

REPORT INFORMATION
  Report Type: Spontaneous
  Country: US (occurrence: US)
  Receive Date: 20191115
  Receipt Date: 20200305
  Transmission Date: 20200409
  Serious: Yes (Other)
  Sender: FDA-Public Use
  Company Number: US-JNJFOC-20191118488

PATIENT
  Sex: Female
  Weight: 102.6 kg

DRUGS (1)
  1. STELARA [Suspect]
     Active Substance: USTEKINUMAB
     Indication: CROHN^S DISEASE
     Dosage: ABOUT A YEAR AGO
     Route: 058
     Dates: start: 2018

REACTIONS (1)
  - Crohn^s disease [Unknown]
